FAERS Safety Report 11376439 (Version 3)
Quarter: 2015Q4

REPORT INFORMATION
  Report Type: Report from Study
  Country: JP (occurrence: JP)
  Receive Date: 20150813
  Receipt Date: 20151028
  Transmission Date: 20160304
  Serious: Yes (Hospitalization)
  Sender: FDA-Public Use
  Company Number: JP-AMGEN-JPNCT2015082519

PATIENT
  Age: 65 Year
  Sex: Female
  Weight: 57.2 kg

DRUGS (27)
  1. 5-FU                               /00098801/ [Suspect]
     Active Substance: FLUOROURACIL
     Dosage: 2400 MG/M2, Q2WEEKS
     Route: 041
     Dates: start: 20150728, end: 20150728
  2. 5-FU                               /00098801/ [Suspect]
     Active Substance: FLUOROURACIL
     Dosage: 200 MG/M2, Q2WEEKS
     Route: 040
     Dates: start: 20150825, end: 20150825
  3. AZULENE                            /00317303/ [Concomitant]
     Indication: STOMATITIS
     Dosage: 1 DF, TID
     Route: 049
     Dates: start: 20150802
  4. 5-FU                               /00098801/ [Suspect]
     Active Substance: FLUOROURACIL
     Dosage: 200 MG/M2, Q2WEEK
     Route: 040
     Dates: start: 20150915
  5. OXALIPLATIN. [Suspect]
     Active Substance: OXALIPLATIN
     Dosage: 65 MG/M2, Q2WEEKS
     Route: 041
     Dates: start: 20150825, end: 20150825
  6. MINOCYCLINE\MINOCYCLINE HYDROCHLORIDE [Suspect]
     Active Substance: MINOCYCLINE\MINOCYCLINE HYDROCHLORIDE
     Indication: PROPHYLAXIS
     Dosage: 100 MG, BID
     Route: 048
     Dates: start: 20150728
  7. CEFALEXIN [Suspect]
     Active Substance: CEPHALEXIN
     Indication: POSTOPERATIVE WOUND INFECTION
     Dosage: 500 MG, QID
     Route: 048
  8. BIO-THREE [Concomitant]
     Active Substance: HERBALS
     Indication: GASTROINTESTINAL DISORDER
     Dosage: 2 DF, TID
     Route: 048
  9. PANITUMUMAB [Suspect]
     Active Substance: PANITUMUMAB
     Indication: COLON CANCER
     Dosage: 6 MG/KG, Q2WEEKS
     Route: 041
     Dates: start: 20150728, end: 20150728
  10. 5-FU                               /00098801/ [Suspect]
     Active Substance: FLUOROURACIL
     Indication: COLON CANCER
     Dosage: 400 MG/M2, Q2WEEKS
     Route: 040
     Dates: start: 20150728, end: 20150728
  11. DAIKENCHUTO [Suspect]
     Active Substance: HERBALS
     Indication: PROPHYLAXIS
     Dosage: 2.5 MG, TID
     Route: 048
  12. LIXIANA [Concomitant]
     Active Substance: EDOXABAN TOSILATE MONOHYDRATE
     Indication: THROMBOSIS PROPHYLAXIS
     Dosage: 30 MG, QD
     Route: 048
  13. 5-FU                               /00098801/ [Suspect]
     Active Substance: FLUOROURACIL
     Dosage: 2000 MG/M2, Q2WEEK
     Route: 041
     Dates: start: 20150915
  14. CALCIUM LEVOFOLINATE [Concomitant]
     Active Substance: LEVOLEUCOVORIN CALCIUM
     Dosage: 200 MG/M2, Q2WEEKS
     Route: 041
     Dates: start: 20150915
  15. 5-FU                               /00098801/ [Suspect]
     Active Substance: FLUOROURACIL
     Dosage: 2000 MG/M2, Q2WEEKS
     Route: 041
     Dates: start: 20150825, end: 20150825
  16. OXALIPLATIN. [Suspect]
     Active Substance: OXALIPLATIN
     Dosage: 65 MG/M2, Q2WEEKS
     Route: 041
     Dates: start: 20150915
  17. FERROUS SODIUM CITRATE [Suspect]
     Active Substance: SODIUM FERROUS CITRATE
     Indication: IRON DEFICIENCY ANAEMIA
     Dosage: 100 MG, BID
     Route: 048
  18. HIRUDOID                           /00723701/ [Concomitant]
     Indication: PROPHYLAXIS
     Dosage: UNK
     Route: 062
     Dates: start: 20150728
  19. PANITUMUMAB [Suspect]
     Active Substance: PANITUMUMAB
     Dosage: 6 MG/KG, Q2WEEK
     Route: 041
     Dates: start: 20150915
  20. MINOCYCLINE\MINOCYCLINE HYDROCHLORIDE [Suspect]
     Active Substance: MINOCYCLINE\MINOCYCLINE HYDROCHLORIDE
     Dosage: 100 MG, BID
     Route: 048
     Dates: start: 20150808, end: 20150810
  21. CALCIUM LEVOFOLINATE [Concomitant]
     Active Substance: LEVOLEUCOVORIN CALCIUM
     Dosage: 200 MG/M2, Q2WEEKS
     Route: 041
     Dates: start: 20150825, end: 20150825
  22. AZULENE                            /00317303/ [Concomitant]
     Dosage: 6 DF, UNK
     Route: 049
  23. BLOPRESS [Concomitant]
     Active Substance: CANDESARTAN CILEXETIL
     Indication: HYPERTENSION
     Dosage: 8 MG, QD
     Route: 048
  24. PANITUMUMAB [Suspect]
     Active Substance: PANITUMUMAB
     Dosage: 6 MG/KG, Q2WEEKS
     Route: 041
     Dates: start: 20150825, end: 20150825
  25. OXALIPLATIN. [Suspect]
     Active Substance: OXALIPLATIN
     Indication: COLON CANCER
     Dosage: 85 MG/M2, Q2WEEKS
     Route: 041
     Dates: start: 20150728, end: 20150728
  26. CALCIUM LEVOFOLINATE [Concomitant]
     Active Substance: LEVOLEUCOVORIN CALCIUM
     Indication: COLON CANCER
     Dosage: 200 MG/M2, Q2WEEKS
     Route: 041
     Dates: start: 20150728, end: 20150728
  27. AMLODIN [Concomitant]
     Active Substance: AMLODIPINE BESYLATE
     Indication: HYPERTENSION
     Dosage: 5 MG, QD
     Route: 048

REACTIONS (3)
  - Diarrhoea [Recovered/Resolved]
  - Decreased appetite [Recovered/Resolved]
  - Dermatitis acneiform [Unknown]

NARRATIVE: CASE EVENT DATE: 20150729
